FAERS Safety Report 18735840 (Version 1)
Quarter: 2021Q1

REPORT INFORMATION
  Report Type: Spontaneous
  Country: PL (occurrence: PL)
  Receive Date: 20210113
  Receipt Date: 20210113
  Transmission Date: 20210419
  Serious: Yes (Other)
  Sender: FDA-Public Use
  Company Number: PL-LUPIN PHARMACEUTICALS INC.-2020-11755

PATIENT
  Age: 74 Year
  Sex: Female

DRUGS (5)
  1. AZITHROMYCIN ANHYDROUS. [Suspect]
     Active Substance: AZITHROMYCIN ANHYDROUS
     Indication: COVID-19
     Dosage: UNK
     Route: 065
     Dates: start: 202004
  2. MEROPENEM. [Concomitant]
     Active Substance: MEROPENEM
     Indication: SYMPTOMATIC TREATMENT
     Dosage: UNK
     Route: 065
     Dates: start: 202004
  3. CLEMASTINUM [CLEMASTINE] [Concomitant]
     Indication: PRURITUS
     Dosage: UNK
     Route: 065
     Dates: start: 202004
  4. AMIKACIN. [Concomitant]
     Active Substance: AMIKACIN
     Indication: SYMPTOMATIC TREATMENT
     Dosage: UNK (STOPPED)
     Route: 065
     Dates: start: 202004
  5. CHLOROQUINE. [Suspect]
     Active Substance: CHLOROQUINE
     Indication: COVID-19
     Dosage: UNK
     Route: 065
     Dates: start: 202004

REACTIONS (1)
  - Off label use [Unknown]

NARRATIVE: CASE EVENT DATE: 202004
